FAERS Safety Report 9270186 (Version 1)
Quarter: 2013Q2

REPORT INFORMATION
  Report Type: Spontaneous
  Country: US (occurrence: US)
  Receive Date: 20130503
  Receipt Date: 20130503
  Transmission Date: 20140414
  Serious: Yes (Death, Hospitalization)
  Sender: FDA-Public Use
  Company Number: US-BAYER-2013-053225

PATIENT
  Age: 48 Year
  Sex: Female

DRUGS (14)
  1. YAZ [Suspect]
  2. YASMIN [Suspect]
     Indication: MENSTRUAL CYCLE MANAGEMENT
  3. ZYRTEC-D [Concomitant]
     Dosage: UNK
     Dates: start: 20060327
  4. DICLOFENAC SODIUM [Concomitant]
     Dosage: UNK
     Dates: start: 20060327
  5. LUXIQ FOAM [Concomitant]
     Dosage: UNK
     Dates: start: 20060327
  6. LEVAQUIN [Concomitant]
     Dosage: 500 MG, UNK
     Dates: start: 20060402
  7. SYNTHROID [Concomitant]
     Dosage: 0.15 MG, UNK
     Dates: start: 20060501
  8. SARAFEM [Concomitant]
     Dosage: 20 MG, UNK
     Dates: start: 20060501
  9. OMEPRAZOLE [Concomitant]
     Dosage: 10 MG, UNK
     Dates: start: 20060502
  10. AZITHROMYCIN [Concomitant]
     Dosage: 250 MG, UNK
     Dates: start: 20060527
  11. PROMETHAZINE DM [Concomitant]
     Dosage: 250 MG, UNK
     Dates: start: 20060527
  12. LISINOPRIL [Concomitant]
  13. LIPITOR [Concomitant]
  14. EFFEXOR XR [Concomitant]

REACTIONS (3)
  - Cerebrovascular accident [None]
  - Basal ganglia infarction [None]
  - Biliary cancer metastatic [Fatal]
